FAERS Safety Report 9252892 (Version 1)
Quarter: 2013Q2

REPORT INFORMATION
  Report Type: Spontaneous
  Country: DE (occurrence: GB)
  Receive Date: 20130424
  Receipt Date: 20130424
  Transmission Date: 20140414
  Serious: Yes (Hospitalization)
  Sender: FDA-Public Use
  Company Number: GB-FRI-1000044605

PATIENT
  Sex: Male

DRUGS (1)
  1. MEMANTINE [Suspect]
     Dosage: 20 MG
     Route: 048

REACTIONS (1)
  - Lower respiratory tract infection [Unknown]
